FAERS Safety Report 6740658-5 (Version None)
Quarter: 2010Q2

REPORT INFORMATION
  Report Type: 
  Country: None (occurrence: None)
  Receive Date: 20100525
  Receipt Date: 20100513
  Transmission Date: 20101027
  Serious: Yes (Death, Life-Threatening, Hospitalization)
  Sender: FDA-Public Use
  Company Number: JP-WATSON-2010-06564

PATIENT
  Age: 75 Year
  Sex: Female
  Weight: 51.5 kg

DRUGS (18)
  1. PREDNISOLONE [Suspect]
     Indication: RHEUMATOID ARTHRITIS
     Dosage: ONCE DAILY
     Route: 048
     Dates: start: 20060704, end: 20100319
  2. METHOTREXATE SODIUM [Suspect]
     Indication: RHEUMATOID ARTHRITIS
     Dosage: A WEEK
     Route: 048
     Dates: start: 20091201, end: 20100319
  3. METHOTREXATE SODIUM [Suspect]
     Dosage: 10 MG, WEEKLY
     Route: 048
     Dates: start: 20091006, end: 20091130
  4. METHOTREXATE SODIUM [Suspect]
     Dosage: 5 MG, WEEKLY
     Route: 048
     Dates: start: 20060926, end: 20091005
  5. INVESTIGATIONAL DRUG [Suspect]
     Indication: RHEUMATOID ARTHRITIS
     Dosage: 5 MG, 2X/DAY
     Route: 048
     Dates: start: 20100202, end: 20100315
  6. SPLENDIL [Concomitant]
     Dosage: UNK
     Dates: start: 20010723
  7. SLOW-K [Concomitant]
     Dosage: UNK
     Dates: start: 20030507
  8. FOLIAMIN [Concomitant]
     Dosage: UNK
     Dates: start: 20051202, end: 20100319
  9. TAKEPRON [Concomitant]
     Dosage: UNK
     Dates: start: 20070409, end: 20100319
  10. ASPIRIN [Concomitant]
     Dosage: UNK
     Dates: start: 20070409, end: 20100319
  11. ALDACTONE [Concomitant]
     Dosage: UNK
     Dates: start: 20080519, end: 20100319
  12. LASIX [Concomitant]
     Dosage: UNK
     Dates: start: 20080714, end: 20100319
  13. CELECOXIB [Concomitant]
     Dosage: UNK
     Dates: start: 20080811, end: 20100319
  14. RISEDRONATE SODIUM [Concomitant]
     Dosage: UNK
     Dates: start: 20081006, end: 20100319
  15. COVERSYL                           /00790701/ [Concomitant]
     Dosage: UNK
     Dates: start: 20010319, end: 20100319
  16. HIRUDOID                           /00723701/ [Concomitant]
     Dosage: UNK
     Dates: start: 20100203, end: 20100319
  17. HYALURONATE SODIUM [Concomitant]
     Dosage: UNK
     Dates: start: 20000306, end: 20100319
  18. LENDORMIN [Concomitant]
     Dosage: UNK
     Dates: start: 20100303, end: 20100319

REACTIONS (4)
  - DISSEMINATED INTRAVASCULAR COAGULATION [None]
  - MULTI-ORGAN FAILURE [None]
  - PNEUMOCYSTIS JIROVECI PNEUMONIA [None]
  - PYREXIA [None]
